FAERS Safety Report 24711556 (Version 3)
Quarter: 2025Q1

REPORT INFORMATION
  Report Type: Spontaneous
  Country: FR (occurrence: FR)
  Receive Date: 20241209
  Receipt Date: 20250221
  Transmission Date: 20250409
  Serious: No
  Sender: PFIZER
  Company Number: None

PATIENT
  Age: 3 Year
  Sex: Male
  Weight: 14.4 kg

DRUGS (1)
  1. NGENLA [Suspect]
     Active Substance: SOMATROGON-GHLA
     Indication: Growth hormone deficiency
     Dosage: 10.5 MG, WEEKLY
     Route: 058
     Dates: start: 20240912, end: 20241104

REACTIONS (2)
  - Injection site pain [Recovered/Resolved]
  - Product prescribing error [Unknown]

NARRATIVE: CASE EVENT DATE: 20240912
